FAERS Safety Report 5628968-6 (Version None)
Quarter: 2008Q1

REPORT INFORMATION
  Report Type: 
  Country: None (occurrence: None)
  Receive Date: 20080214
  Receipt Date: 20080131
  Transmission Date: 20080703
  Serious: Yes (Hospitalization)
  Sender: FDA-Public Use
  Company Number: US022567

PATIENT
  Sex: Male

DRUGS (1)
  1. PROVIGIL [Suspect]
     Dosage: 200 MG, ORAL
     Route: 048

REACTIONS (1)
  - ANAPHYLACTIC REACTION [None]
